FAERS Safety Report 8766620 (Version 2)
Quarter: 2012Q4

REPORT INFORMATION
  Report Type: Report from Study
  Country: US (occurrence: US)
  Receive Date: 20120904
  Receipt Date: 20121114
  Transmission Date: 20130627
  Serious: Yes (Death, Other)
  Sender: FDA-Public Use
  Company Number: US-JNJFOC-20120814727

PATIENT

DRUGS (3)
  1. DOXORUBICIN HYDROCHLORIDE(DOXIL) [Suspect]
     Indication: NEOPLASM MALIGNANT
     Route: 042
  2. CARBOPLATIN [Interacting]
     Indication: NEOPLASM MALIGNANT
     Route: 065
  3. BEVACIZUMAB [Interacting]
     Indication: NEOPLASM MALIGNANT
     Route: 065

REACTIONS (15)
  - Death [Fatal]
  - Hypertension [Unknown]
  - Cardiac failure congestive [Unknown]
  - Thrombocytopenia [Unknown]
  - Pancreatitis [Unknown]
  - Pancreatitis acute [Unknown]
  - Disease progression [Unknown]
  - Neutropenia [Unknown]
  - Odynophagia [Unknown]
  - Osteonecrosis [Unknown]
  - Drug interaction [Unknown]
  - Palmar-plantar erythrodysaesthesia syndrome [Unknown]
  - Abdominal pain [Unknown]
  - Nausea [Unknown]
  - Abdominal distension [Unknown]
